FAERS Safety Report 14229278 (Version 2)
Quarter: 2018Q1

REPORT INFORMATION
  Report Type: Spontaneous
  Country: PR (occurrence: PR)
  Receive Date: 20171128
  Receipt Date: 20180118
  Transmission Date: 20180508
  Serious: Yes (Death)
  Sender: FDA-Public Use
  Company Number: PR-PFIZER INC-2017506147

PATIENT
  Age: 89 Year
  Sex: Female
  Weight: 55.78 kg

DRUGS (2)
  1. SUTENT [Suspect]
     Active Substance: SUNITINIB MALATE
     Indication: RENAL CANCER
     Dosage: 25 MG, DAILY
     Route: 048
     Dates: start: 20171113
  2. SUTENT [Suspect]
     Active Substance: SUNITINIB MALATE
     Dosage: 25 MG, DAILY
     Route: 048
     Dates: start: 20171113

REACTIONS (3)
  - Death [Fatal]
  - Pyrexia [Unknown]
  - Night sweats [Unknown]

NARRATIVE: CASE EVENT DATE: 201711
